FAERS Safety Report 8353238-5 (Version None)
Quarter: 2012Q2

REPORT INFORMATION
  Report Type: 
  Country: None (occurrence: None)
  Receive Date: 20120511
  Receipt Date: 20120503
  Transmission Date: 20120825
  Serious: Yes (Other)
  Sender: FDA-Public Use
  Company Number: US-ASTRAZENECA-2012SE07381

PATIENT
  Age: 73 Year
  Sex: Male
  Weight: 84.8 kg

DRUGS (12)
  1. FOOD SUPPLEMENT [Concomitant]
  2. MILK OF MAGNESIA TAB [Concomitant]
     Dosage: 400 MG/ 5ML AS NEEDED
  3. METOPROLOL SUCCINATE [Suspect]
     Route: 048
  4. FERROUS SULFATE TAB [Interacting]
     Dosage: THERE WAS A TIME WHEN HE TOOK 65 MG THREE TIMES A DAY
     Route: 048
  5. FERROUS SULFATE TAB [Interacting]
     Route: 048
  6. LISINOPRIL AND HYDROCHLOROTHIAZIDE [Concomitant]
     Dosage: 10 MG/ 12.5 MG ONE TABLET BY MOUTH DAILY
     Route: 048
  7. DOCUSATE SODIUM [Concomitant]
  8. FERROUS SULFATE TAB [Interacting]
     Route: 048
     Dates: start: 19990101
  9. NEXIUM [Interacting]
     Indication: GASTROOESOPHAGEAL REFLUX DISEASE
     Route: 048
     Dates: start: 19980101
  10. VYTORIN [Concomitant]
     Dosage: 10 MG/ 40 MG TABLET ONE BY MOUTH
     Route: 048
  11. MIRALAX [Concomitant]
  12. FIBERCON [Concomitant]

REACTIONS (17)
  - COLON ADENOMA [None]
  - CATARACT [None]
  - CORONARY ARTERY DISEASE [None]
  - HIATUS HERNIA [None]
  - DRUG DOSE OMISSION [None]
  - PANIC REACTION [None]
  - PERIPHERAL VASCULAR DISORDER [None]
  - CHRONIC GASTROINTESTINAL BLEEDING [None]
  - HYPERTENSION [None]
  - IRON DEFICIENCY ANAEMIA [None]
  - MYELODYSPLASTIC SYNDROME [None]
  - COLONIC POLYP [None]
  - DIVERTICULITIS [None]
  - DRUG HYPERSENSITIVITY [None]
  - DRUG INTERACTION [None]
  - HYPERLIPIDAEMIA [None]
  - GASTROOESOPHAGEAL REFLUX DISEASE [None]
